FAERS Safety Report 6239621-2 (Version None)
Quarter: 2009Q2

REPORT INFORMATION
  Report Type: 
  Country: None (occurrence: None)
  Receive Date: 20090622
  Receipt Date: 20090520
  Transmission Date: 20091009
  Serious: Yes (Death)
  Sender: FDA-Public Use
  Company Number: NL-GENENTECH-283939

PATIENT
  Sex: Male

DRUGS (5)
  1. RANIBIZUMAB [Suspect]
     Indication: MACULAR DEGENERATION
     Dosage: 0.5 MG, QD
     Route: 031
     Dates: start: 20090203, end: 20090507
  2. RANIBIZUMAB [Suspect]
     Dosage: 0.5 MG, QD
     Route: 031
     Dates: start: 20090303
  3. RANIBIZUMAB [Suspect]
     Dosage: 0.5 MG, QD
     Route: 031
     Dates: start: 20090331
  4. SPIRIVA [Concomitant]
     Indication: DRUG USE FOR UNKNOWN INDICATION
     Dosage: UNK
  5. GLUCOMOTION [Concomitant]
     Indication: DRUG USE FOR UNKNOWN INDICATION

REACTIONS (1)
  - MYOCARDIAL INFARCTION [None]
